FAERS Safety Report 7337599-1 (Version None)
Quarter: 2011Q1

REPORT INFORMATION
  Report Type: 
  Country: None (occurrence: None)
  Receive Date: 20110308
  Receipt Date: 20110304
  Transmission Date: 20110831
  Serious: Yes (Other)
  Sender: FDA-Public Use
  Company Number: US-ASTRAZENECA-2007UW11480

PATIENT
  Age: 16187 Day
  Sex: Female
  Weight: 96.6 kg

DRUGS (20)
  1. GEODON [Concomitant]
     Dates: start: 20061101, end: 20080701
  2. ABILIFY [Concomitant]
     Dosage: 10-15 MG
     Dates: start: 20050901, end: 20060101
  3. ABILIFY [Concomitant]
     Dosage: 15 MG-50 MG
     Route: 048
     Dates: start: 20050921
  4. DEPAKOTE [Concomitant]
     Dosage: 500 MG TO 1000 MG
     Route: 048
     Dates: start: 20020613
  5. ALLEGRA [Concomitant]
     Dosage: 180
     Dates: start: 20100806
  6. LISINOPRIL [Concomitant]
     Dates: end: 20100701
  7. CLONAZEPAM [Concomitant]
     Dates: start: 20101227
  8. RISPERDAL [Concomitant]
     Dates: start: 20020601, end: 20030401
  9. PREDNISONE [Concomitant]
     Dosage: 10 MG TAKEN EVRY 12 HOURS
     Route: 048
     Dates: start: 20100601, end: 20101001
  10. LOPRESSOR [Concomitant]
     Route: 048
     Dates: start: 20100806
  11. SEROQUEL [Suspect]
     Dosage: 100-300 MG
     Route: 048
     Dates: start: 20030929
  12. TEGRETOL [Concomitant]
     Dosage: 200-400 MG
     Route: 048
     Dates: start: 20050921
  13. TEGRETOL [Concomitant]
     Dosage: 200I AT NIGHT
     Dates: start: 20100101
  14. NEXIUM [Concomitant]
     Dates: start: 20100806
  15. MEVACOR [Concomitant]
     Dosage: 40 MG AT EVERY EVENING.
     Route: 048
     Dates: start: 20100101
  16. SEROQUEL [Suspect]
     Indication: BIPOLAR DISORDER
     Dosage: 400-600 MG
     Route: 048
     Dates: start: 20030924, end: 20050701
  17. ZOLOFT [Concomitant]
     Route: 048
     Dates: start: 20051017
  18. GYNODIOL [Concomitant]
     Route: 048
     Dates: start: 20050921
  19. PRILOSEC [Concomitant]
     Dates: start: 20101227
  20. ESTRIDOL [Concomitant]
     Dates: start: 20100806

REACTIONS (12)
  - HYPERTRIGLYCERIDAEMIA [None]
  - VISION BLURRED [None]
  - NEUROPATHY PERIPHERAL [None]
  - BLOOD CHOLESTEROL INCREASED [None]
  - TYPE 1 DIABETES MELLITUS [None]
  - DIABETIC NEUROPATHY [None]
  - HYPERCHOLESTEROLAEMIA [None]
  - TYPE 2 DIABETES MELLITUS [None]
  - OBESITY [None]
  - DIABETES MELLITUS INADEQUATE CONTROL [None]
  - EPISTAXIS [None]
  - HYPERLIPIDAEMIA [None]
